FAERS Safety Report 25042215 (Version 1)
Quarter: 2025Q1

REPORT INFORMATION
  Report Type: Spontaneous
  Country: BR (occurrence: BR)
  Receive Date: 20250305
  Receipt Date: 20250305
  Transmission Date: 20250409
  Serious: Yes (Disabling, Other)
  Sender: SANDOZ
  Company Number: BR-002147023-NVSC2024BR140302

PATIENT
  Age: 82 Year
  Sex: Male

DRUGS (2)
  1. EXELON [Suspect]
     Active Substance: RIVASTIGMINE TARTRATE
     Indication: Dementia Alzheimer^s type
     Dosage: 1 DF, QD
     Route: 062
     Dates: start: 202403, end: 202406
  2. EXELON [Suspect]
     Active Substance: RIVASTIGMINE TARTRATE
     Indication: Dementia Alzheimer^s type
     Dosage: 1 DOSAGE FORM, QD
     Route: 062
     Dates: start: 20240104, end: 202403

REACTIONS (6)
  - Dementia Alzheimer^s type [Recovering/Resolving]
  - Suicidal ideation [Recovering/Resolving]
  - Cognitive disorder [Recovering/Resolving]
  - Confusional state [Recovering/Resolving]
  - Decreased appetite [Recovering/Resolving]
  - Depression [Recovering/Resolving]

NARRATIVE: CASE EVENT DATE: 20240301
